FAERS Safety Report 7947146-9 (Version None)
Quarter: 2011Q4

REPORT INFORMATION
  Report Type: 
  Country: None (occurrence: None)
  Receive Date: 20111129
  Receipt Date: 20111116
  Transmission Date: 20120403
  Serious: Yes (Other)
  Sender: FDA-Public Use
  Company Number: US-RB-024844-11

PATIENT
  Sex: Female

DRUGS (2)
  1. SUBOXONE [Suspect]
     Indication: DRUG DEPENDENCE
     Route: 060
     Dates: start: 20100803, end: 20110329
  2. SUBUTEX [Suspect]
     Indication: DRUG DEPENDENCE
     Route: 060
     Dates: start: 20110330

REACTIONS (3)
  - FOETAL HEART RATE DECREASED [None]
  - FOETAL DISTRESS SYNDROME [None]
  - MATERNAL EXPOSURE DURING PREGNANCY [None]
